FAERS Safety Report 8443557-6 (Version None)
Quarter: 2012Q2

REPORT INFORMATION
  Report Type: 
  Country: None (occurrence: None)
  Receive Date: 20120618
  Receipt Date: 20120613
  Transmission Date: 20120825
  Serious: No
  Sender: FDA-Public Use
  Company Number: US-PFIZER INC-2012142776

PATIENT
  Sex: Male
  Weight: 63.492 kg

DRUGS (5)
  1. IBUPROFEN [Concomitant]
     Dosage: 800 MG, UNK
  2. PERCOCET [Concomitant]
     Dosage: UNK
     Dates: end: 20120501
  3. NEURONTIN [Suspect]
     Indication: NEUROPATHY PERIPHERAL
     Dosage: 300 MG, 3X/DAY
     Route: 048
     Dates: start: 20120401, end: 20120101
  4. NEURONTIN [Suspect]
     Dosage: 600 MG, 3X/DAY
     Route: 048
     Dates: start: 20120101, end: 20120101
  5. SKELAXIN [Concomitant]
     Dosage: UNK
     Dates: end: 20120501

REACTIONS (1)
  - DRUG INEFFECTIVE [None]
